FAERS Safety Report 10012764 (Version 1)
Quarter: 2014Q1

REPORT INFORMATION
  Report Type: Spontaneous
  Country: AT (occurrence: AT)
  Receive Date: 20140314
  Receipt Date: 20140314
  Transmission Date: 20141002
  Serious: Yes (Hospitalization, Other)
  Sender: FDA-Public Use
  Company Number: AT-PFIZER INC-2014071425

PATIENT
  Age: 74 Year
  Sex: Male
  Weight: 120 kg

DRUGS (13)
  1. ALPRAZOLAM [Suspect]
     Dosage: 0.5 MG, 1X/DAY
     Dates: start: 20140124
  2. TRANSTEC [Suspect]
     Indication: SCIATICA
     Dosage: 35, MICROGRAM PER HOUR
     Route: 062
     Dates: start: 20140124, end: 20140127
  3. DOGMATIL [Suspect]
     Dosage: 50 MG, 1X/DAY
     Dates: start: 20140124
  4. SEROXAT [Suspect]
     Dosage: 20 MG, 1X/DAY
     Dates: start: 20140124
  5. AMLODIPINE BESILATE [Concomitant]
     Dosage: 5 G, 1X/DAY
     Dates: start: 20140124
  6. SOTAHEXAL [Concomitant]
     Dosage: 160 MG, 1X/DAY
     Dates: start: 20140124
  7. TEBOFORTAN [Concomitant]
     Dosage: UNK
     Dates: start: 20140124
  8. THROMBO ASS [Concomitant]
     Dosage: 100 MG, 1X/DAY
     Dates: start: 20140124
  9. VERTIROSAN [Concomitant]
     Dosage: UNK
     Dates: start: 20140124
  10. AMARYL [Concomitant]
     Dosage: 2 MG, 1X/DAY
     Dates: start: 20140124
  11. ACEMIN [Concomitant]
     Dosage: 20 MG, 1X/DAY
     Dates: start: 20140124
  12. HYLO COMOD [Concomitant]
     Dosage: UNK
     Dates: start: 20140124
  13. FURADANTIN [Concomitant]
     Indication: URINARY TRACT INFECTION
     Dosage: UNK
     Dates: start: 20140127

REACTIONS (2)
  - Agitation [Not Recovered/Not Resolved]
  - Delirium [Not Recovered/Not Resolved]
